FAERS Safety Report 9626673 (Version 1)
Quarter: 2013Q4

REPORT INFORMATION
  Report Type: Spontaneous
  Country: US (occurrence: US)
  Receive Date: 20131016
  Receipt Date: 20131016
  Transmission Date: 20140711
  Serious: Yes (Other)
  Sender: FDA-Public Use
  Company Number: US-PFIZER INC-2013295100

PATIENT
  Sex: Female

DRUGS (2)
  1. CADUET [Suspect]
     Dosage: UNK
  2. PROCARDIA [Suspect]
     Dosage: UNK

REACTIONS (1)
  - Nervous system disorder [Unknown]
